FAERS Safety Report 4521809-X (Version None)
Quarter: 2004Q4

REPORT INFORMATION
  Report Type: 
  Country: None (occurrence: None)
  Receive Date: 20041209
  Receipt Date: 20041202
  Transmission Date: 20050328
  Serious: Yes (Hospitalization)
  Sender: FDA-Public Use
  Company Number: 200414531FR

PATIENT
  Age: 50 Year
  Sex: Male

DRUGS (9)
  1. CLAFORAN [Suspect]
     Route: 042
     Dates: start: 20041029, end: 20041104
  2. PRIMPERAN [Suspect]
     Route: 048
     Dates: start: 20041027, end: 20041103
  3. AUGMENTIN '125' [Suspect]
     Route: 042
     Dates: start: 20041025, end: 20041029
  4. BURINEX [Suspect]
     Route: 042
     Dates: start: 20041022, end: 20041103
  5. NEXIUM [Suspect]
     Route: 048
     Dates: start: 20041022, end: 20041107
  6. ACETAMINOPHEN [Suspect]
     Route: 042
     Dates: start: 20041022, end: 20041104
  7. CIFLOX [Suspect]
     Dates: start: 20041029, end: 20041104
  8. SURBRONC [Suspect]
     Dates: start: 20041030, end: 20041103
  9. EUPRESSYL [Suspect]
     Route: 048
     Dates: start: 20041101, end: 20041104

REACTIONS (1)
  - CYTOLYTIC HEPATITIS [None]
